FAERS Safety Report 8975451 (Version 1)
Quarter: 2012Q4

REPORT INFORMATION
  Report Type: 
  Country: US (occurrence: US)
  Receive Date: 20121219
  Receipt Date: 20121219
  Transmission Date: 20130627
  Serious: No
  Sender: FDA-Public Use
  Company Number: US-AMGEN-USASP2012073237

PATIENT
  Age: 62 Year
  Sex: Female

DRUGS (11)
  1. PROLIA [Suspect]
     Indication: OSTEOPOROSIS POSTMENOPAUSAL
     Dosage: UNK
     Dates: start: 201111
  2. VITAMIN D3 [Concomitant]
     Dosage: UNK
  3. MULTIVITAMIN [Concomitant]
     Dosage: UNK
  4. PREMARIN [Concomitant]
     Dosage: UNK UNK, qd
  5. PROTONIX [Concomitant]
     Indication: GASTROOESOPHAGEAL REFLUX DISEASE
     Dosage: 40 mg, qd
  6. TOVIAZ [Concomitant]
     Indication: URINARY INCONTINENCE
     Dosage: UNK
  7. SYNTHROID [Concomitant]
     Dosage: 50 mug, qd
  8. IBUPROFEN [Concomitant]
     Dosage: 400 mg, bid
  9. LORAZEPAM [Concomitant]
     Indication: SLEEP DISORDER
     Dosage: UNK UNK, prn
  10. L ARGININE [Concomitant]
     Dosage: UNK
  11. FLU [Concomitant]

REACTIONS (8)
  - Drug interaction [Unknown]
  - Neck pain [Recovered/Resolved]
  - Nasopharyngitis [Unknown]
  - Inappropriate schedule of drug administration [Unknown]
  - Bone pain [Recovered/Resolved]
  - Myalgia [Recovered/Resolved]
  - Arthralgia [Not Recovered/Not Resolved]
  - Musculoskeletal pain [Recovered/Resolved]
